FAERS Safety Report 4692715-5 (Version None)
Quarter: 2005Q2

REPORT INFORMATION
  Report Type: 
  Country: None (occurrence: None)
  Receive Date: 20050617
  Receipt Date: 20050311
  Transmission Date: 20051028
  Serious: Yes (Hospitalization)
  Sender: FDA-Public Use
  Company Number: US-MERCK-0503USA02698

PATIENT
  Age: 51 Year
  Sex: Male
  Weight: 134 kg

DRUGS (8)
  1. VIOXX [Suspect]
     Indication: ARTHRITIS
     Route: 048
     Dates: start: 20000429, end: 20041001
  2. VIAGRA [Concomitant]
     Route: 065
     Dates: start: 20000101
  3. ZOCOR [Concomitant]
     Route: 065
     Dates: start: 20010101, end: 20020101
  4. GLUCOTROL [Concomitant]
     Route: 065
     Dates: start: 20020101
  5. TRICOR [Concomitant]
     Route: 065
     Dates: start: 20020101
  6. BEXTRA [Concomitant]
     Route: 065
  7. LIPITOR [Concomitant]
     Route: 065
     Dates: start: 20000101, end: 20000101
  8. PRAVACHOL [Concomitant]
     Route: 065
     Dates: start: 20010101, end: 20010101

REACTIONS (21)
  - ACUTE MYOCARDIAL INFARCTION [None]
  - ADVERSE EVENT [None]
  - ANGINA PECTORIS [None]
  - ANORECTAL DISORDER [None]
  - ARTHROPOD STING [None]
  - BLOOD URINE PRESENT [None]
  - BRONCHITIS [None]
  - CELLULITIS [None]
  - CONTUSION [None]
  - CORONARY ARTERY DISEASE [None]
  - DIABETES MELLITUS [None]
  - DRUG ADMINISTRATION ERROR [None]
  - DYSPEPSIA [None]
  - DYSURIA [None]
  - EMOTIONAL DISTRESS [None]
  - FALL [None]
  - HYPERTENSION [None]
  - ISCHAEMIC CARDIOMYOPATHY [None]
  - LOBAR PNEUMONIA [None]
  - RECTAL HAEMORRHAGE [None]
  - TREATMENT NONCOMPLIANCE [None]
